FAERS Safety Report 5524558-4 (Version None)
Quarter: 2007Q4

REPORT INFORMATION
  Report Type: 
  Country: None (occurrence: None)
  Receive Date: 20071123
  Receipt Date: 20071120
  Transmission Date: 20080405
  Serious: Yes (Death)
  Sender: FDA-Public Use
  Company Number: JP-JNJFOC-20071107600

PATIENT
  Sex: Male
  Weight: 48 kg

DRUGS (4)
  1. ITRIZOLE [Suspect]
     Indication: DRUG USE FOR UNKNOWN INDICATION
     Route: 048
  2. BIOFERMIN [Concomitant]
     Indication: DIARRHOEA
     Route: 048
  3. LOXONIN [Concomitant]
     Indication: LIP AND/OR ORAL CAVITY CANCER
     Route: 048
  4. LENDORMIN [Concomitant]
     Indication: INSOMNIA
     Route: 048

REACTIONS (1)
  - METASTASES TO LUNG [None]
